FAERS Safety Report 22161720 (Version 2)
Quarter: 2023Q2

REPORT INFORMATION
  Report Type: Spontaneous
  Country: US (occurrence: US)
  Receive Date: 20230331
  Receipt Date: 20230421
  Transmission Date: 20230721
  Serious: No
  Sender: FDA-Public Use
  Company Number: US-BAYER-2023A039938

PATIENT
  Age: 49 Year

DRUGS (1)
  1. GADAVIST [Suspect]
     Active Substance: GADOBUTROL
     Indication: Magnetic resonance imaging head
     Dosage: 13.5 ML, ONCE
     Route: 042
     Dates: start: 20230113, end: 20230113

REACTIONS (2)
  - Injection site pruritus [None]
  - Injection site urticaria [None]
